FAERS Safety Report 6032095-6 (Version None)
Quarter: 2009Q1

REPORT INFORMATION
  Report Type: 
  Country: None (occurrence: None)
  Receive Date: 20090108
  Receipt Date: 20051222
  Transmission Date: 20090719
  Serious: Yes (Other)
  Sender: FDA-Public Use
  Company Number: IE-PFIZER INC-2008159911

PATIENT

DRUGS (1)
  1. CELECOXIB [Suspect]
     Indication: ADENOMATOUS POLYPOSIS COLI
     Dosage: 400 MG, 1X/DAY
     Route: 048
     Dates: start: 20020108, end: 20020121

REACTIONS (6)
  - BREAST DISCHARGE [None]
  - BREAST TENDERNESS [None]
  - FATIGUE [None]
  - MOOD ALTERED [None]
  - RASH [None]
  - STOMATITIS [None]
